FAERS Safety Report 15821277 (Version 1)
Quarter: 2019Q1

REPORT INFORMATION
  Report Type: Spontaneous
  Country: BE (occurrence: BE)
  Receive Date: 20190114
  Receipt Date: 20190114
  Transmission Date: 20190417
  Serious: Yes (Hospitalization, Other)
  Sender: FDA-Public Use
  Company Number: BE-009507513-1810BEL010421

PATIENT
  Age: 33 Year
  Sex: Female

DRUGS (1)
  1. IMPLANON [Suspect]
     Active Substance: ETONOGESTREL
     Dosage: 1 IMPLANT
     Route: 059
     Dates: start: 20180913, end: 20181025

REACTIONS (5)
  - Implant site pain [Unknown]
  - Complication of device removal [Recovered/Resolved]
  - Implant site swelling [Unknown]
  - Staphylococcal infection [Unknown]
  - Implant site erythema [Unknown]

NARRATIVE: CASE EVENT DATE: 201810
